FAERS Safety Report 16609344 (Version 1)
Quarter: 2019Q3

REPORT INFORMATION
  Report Type: Spontaneous
  Country: US (occurrence: US)
  Receive Date: 20190607
  Receipt Date: 20190607
  Transmission Date: 20191004
  Serious: Yes (Hospitalization)
  Sender: FDA-Public Use
  Company Number: None

PATIENT
  Age: 26 Year
  Sex: Male

DRUGS (1)
  1. IBUPROFEN 600MG [Suspect]
     Active Substance: IBUPROFEN
     Indication: CYSTIC FIBROSIS
     Route: 048

REACTIONS (2)
  - Abdominal pain [None]
  - Nephrolithiasis [None]

NARRATIVE: CASE EVENT DATE: 20190527
